FAERS Safety Report 14014528 (Version 1)
Quarter: 2017Q3

REPORT INFORMATION
  Report Type: Spontaneous
  Country: US (occurrence: None)
  Receive Date: 20170926
  Receipt Date: 20170926
  Transmission Date: 20171128
  Serious: Yes (Other)
  Sender: FDA-Public Use
  Company Number: None

PATIENT
  Age: 63 Year
  Sex: Female
  Weight: 57.61 kg

DRUGS (2)
  1. BUPROPION SR 200MG [Suspect]
     Active Substance: BUPROPION
     Indication: DEPRESSION
     Route: 048
     Dates: start: 201604
  2. BUPROPION SR 200MG [Suspect]
     Active Substance: BUPROPION
     Indication: FIBROMYALGIA
     Route: 048
     Dates: start: 201604

REACTIONS (4)
  - Product substitution issue [None]
  - Fibromyalgia [None]
  - General symptom [None]
  - Depressive symptom [None]

NARRATIVE: CASE EVENT DATE: 20160404
